FAERS Safety Report 5571220-8 (Version None)
Quarter: 2007Q4

REPORT INFORMATION
  Report Type: 
  Country: None (occurrence: None)
  Receive Date: 20071221
  Receipt Date: 20070219
  Transmission Date: 20080405
  Serious: No
  Sender: FDA-Public Use
  Company Number: A0640089A

PATIENT
  Sex: Male

DRUGS (5)
  1. FLUTICASONE PROPIONATE [Suspect]
     Route: 045
  2. ASTELIN [Concomitant]
  3. SINGULAIR [Concomitant]
  4. SUDAFED 12 HOUR [Concomitant]
  5. CLARINEX [Concomitant]

REACTIONS (2)
  - DRUG INEFFECTIVE [None]
  - NASAL CONGESTION [None]
